FAERS Safety Report 15776226 (Version 2)
Quarter: 2019Q2

REPORT INFORMATION
  Report Type: Spontaneous
  Country: US (occurrence: US)
  Receive Date: 20181231
  Receipt Date: 20190416
  Transmission Date: 20190711
  Serious: No
  Sender: FDA-Public Use
  Company Number: US-BIOGEN-2017BI00453914

PATIENT
  Sex: Female

DRUGS (5)
  1. AVONEX [Suspect]
     Active Substance: INTERFERON BETA-1A
     Indication: MULTIPLE SCLEROSIS
     Route: 050
     Dates: start: 20170802
  2. AVONEX [Suspect]
     Active Substance: INTERFERON BETA-1A
     Route: 050
     Dates: start: 201708
  3. AVONEX [Suspect]
     Active Substance: INTERFERON BETA-1A
     Route: 050
     Dates: start: 201708
  4. AVONEX [Suspect]
     Active Substance: INTERFERON BETA-1A
     Route: 050
     Dates: start: 20170811
  5. AVONEX [Suspect]
     Active Substance: INTERFERON BETA-1A
     Route: 050
     Dates: start: 201708

REACTIONS (10)
  - Pyrexia [Not Recovered/Not Resolved]
  - Chills [Unknown]
  - Muscular weakness [Unknown]
  - Diplopia [Not Recovered/Not Resolved]
  - Influenza [Unknown]
  - Joint stiffness [Unknown]
  - Multiple sclerosis [Not Recovered/Not Resolved]
  - Feeling hot [Unknown]
  - Arthralgia [Unknown]
  - Pain [Unknown]
